FAERS Safety Report 15203599 (Version 1)
Quarter: 2018Q3

REPORT INFORMATION
  Report Type: Report from Study
  Country: BG (occurrence: BG)
  Receive Date: 20180726
  Receipt Date: 20180726
  Transmission Date: 20181010
  Serious: Yes (Hospitalization)
  Sender: FDA-Public Use
  Company Number: PHHY2018BG053420

PATIENT
  Age: 26 Year
  Sex: Female

DRUGS (3)
  1. METHOTREXATE. [Suspect]
     Active Substance: METHOTREXATE
     Indication: ARTHROPATHY
     Dosage: UNK
     Route: 065
     Dates: start: 2006
  2. RESOCHIN [Concomitant]
     Active Substance: NIFEDIPINE
     Indication: ARTHROPATHY
     Dosage: UNK
     Route: 065
     Dates: start: 2006
  3. PREDNISOLON [Concomitant]
     Active Substance: PREDNISOLONE
     Indication: ARTHROPATHY
     Dosage: UNK
     Route: 065
     Dates: start: 2006

REACTIONS (3)
  - Joint effusion [Unknown]
  - Synovial cyst [Unknown]
  - Arthritis [Not Recovered/Not Resolved]

NARRATIVE: CASE EVENT DATE: 2018
